FAERS Safety Report 10947366 (Version 1)
Quarter: 2015Q1

REPORT INFORMATION
  Report Type: Spontaneous
  Country: US (occurrence: None)
  Receive Date: 20150218
  Receipt Date: 20150218
  Transmission Date: 20150721
  Serious: No
  Sender: FDA-Public Use
  Company Number: 2014FE03438

PATIENT
  Age: 40 Year
  Sex: Male
  Weight: 61.2 kg

DRUGS (1)
  1. PREPOPIK [Suspect]
     Active Substance: ANHYDROUS CITRIC ACID\MAGNESIUM OXIDE\SODIUM PICOSULFATE
     Indication: BOWEL PREPARATION
     Dosage: UNK, FORMULATION: POWDER FOR ORAL SOLUTION
     Route: 048
     Dates: start: 20141202, end: 20141202

REACTIONS (3)
  - Abnormal faeces [None]
  - Product reconstitution issue [None]
  - Drug dose omission [None]

NARRATIVE: CASE EVENT DATE: 20141202
